FAERS Safety Report 8227778-3 (Version None)
Quarter: 2012Q1

REPORT INFORMATION
  Report Type: 
  Country: None (occurrence: None)
  Receive Date: 20120322
  Receipt Date: 20120315
  Transmission Date: 20120608
  Serious: Yes (Hospitalization)
  Sender: FDA-Public Use
  Company Number: BR-ALLERGAN-1203878US

PATIENT
  Age: 39 Year
  Sex: Female

DRUGS (4)
  1. SURGIDERM [Concomitant]
     Indication: PRODUCT USED FOR UNKNOWN INDICATION
  2. JUVEDERM [Concomitant]
     Indication: SKIN WRINKLING
  3. FILORGA [Concomitant]
     Indication: PRODUCT USED FOR UNKNOWN INDICATION
  4. BOTULINUM TOXIN TYPE A [Suspect]
     Indication: SKIN WRINKLING
     Dosage: 34 UNITS, SINGLE
     Route: 030
     Dates: start: 20120211, end: 20120211

REACTIONS (8)
  - ASTHENOPIA [None]
  - CONFUSIONAL STATE [None]
  - PHOTOPHOBIA [None]
  - STRABISMUS [None]
  - EYELID PTOSIS [None]
  - EYE PAIN [None]
  - EYE PRURITUS [None]
  - HYPONATRAEMIA [None]
